FAERS Safety Report 21266276 (Version 1)
Quarter: 2022Q3

REPORT INFORMATION
  Report Type: Spontaneous
  Country: US (occurrence: None)
  Receive Date: 20220826
  Receipt Date: 20220826
  Transmission Date: 20221027
  Serious: Yes (Hospitalization)
  Sender: FDA-Public Use
  Company Number: None

PATIENT
  Age: 65 Year
  Sex: Male

DRUGS (12)
  1. MAVENCLAD [Suspect]
     Active Substance: CLADRIBINE
     Indication: Multiple sclerosis
     Dosage: FREQUENCY : DAILY;?
     Route: 048
     Dates: start: 20220804
  2. ASPIRIN [Concomitant]
     Active Substance: ASPIRIN
  3. B12-ACTIVE [Concomitant]
  4. CALCIUM CARBONATE [Concomitant]
     Active Substance: CALCIUM CARBONATE
  5. FISH OIL [Concomitant]
     Active Substance: FISH OIL
  6. LORATADINE [Concomitant]
     Active Substance: LORATADINE
  7. MAGNESIUM [Concomitant]
     Active Substance: MAGNESIUM
  8. METHOCARBAMOL [Concomitant]
     Active Substance: METHOCARBAMOL
  9. SUPER B COMP TAB VIT C [Concomitant]
  10. TECFIDERA [Concomitant]
     Active Substance: DIMETHYL FUMARATE
  11. VIT C/BIOFLV [Concomitant]
  12. ZANTAC [Concomitant]
     Active Substance: RANITIDINE HYDROCHLORIDE

REACTIONS (2)
  - Illness [None]
  - Hospitalisation [None]

NARRATIVE: CASE EVENT DATE: 20220825
